FAERS Safety Report 15649992 (Version 2)
Quarter: 2018Q4

REPORT INFORMATION
  Report Type: Spontaneous
  Country: US (occurrence: US)
  Receive Date: 20181123
  Receipt Date: 20181129
  Transmission Date: 20190205
  Serious: Yes (Hospitalization, Other)
  Sender: FDA-Public Use
  Company Number: US-009507513-1504USA010600

PATIENT
  Age: 72 Year
  Sex: Female
  Weight: 63.5 kg

DRUGS (7)
  1. CUBICIN [Suspect]
     Active Substance: DAPTOMYCIN
     Indication: ENTEROCOCCAL INFECTION
     Dosage: 420 MG, QD
     Route: 042
     Dates: start: 20080416, end: 20080521
  2. AMBIEN [Concomitant]
     Active Substance: ZOLPIDEM TARTRATE
     Dosage: UNK
  3. CUBICIN [Suspect]
     Active Substance: DAPTOMYCIN
     Dosage: 6 MILLIGRAM/KILOGRAM, Q24H
     Route: 042
     Dates: start: 20080416, end: 20080521
  4. XANAX [Concomitant]
     Active Substance: ALPRAZOLAM
     Dosage: UNK
  5. INVANZ [Concomitant]
     Active Substance: ERTAPENEM SODIUM
     Dosage: UNK
  6. CUBICIN [Suspect]
     Active Substance: DAPTOMYCIN
     Indication: WOUND INFECTION
     Dosage: 6 MILLIGRAM/KILOGRAM, Q24H
     Route: 042
     Dates: start: 20080416, end: 20080521
  7. PANTOPRAZOLE [Concomitant]
     Active Substance: PANTOPRAZOLE
     Dosage: UNK

REACTIONS (2)
  - Hypomagnesaemia [Recovered/Resolved]
  - Seizure [Unknown]

NARRATIVE: CASE EVENT DATE: 20080521
